FAERS Safety Report 8223660-6 (Version None)
Quarter: 2012Q1

REPORT INFORMATION
  Report Type: 
  Country: None (occurrence: None)
  Receive Date: 20120316
  Receipt Date: 20120302
  Transmission Date: 20120608
  Serious: Yes (Life-Threatening)
  Sender: FDA-Public Use
  Company Number: B0785401A

PATIENT
  Age: 58 Year
  Sex: Female

DRUGS (7)
  1. METOCLOPRAMIDE [Concomitant]
  2. PACLITAXEL [Suspect]
     Indication: BREAST CANCER
     Dosage: 132 MG/ CYCLIC/ INTRAVENOUS
     Route: 042
     Dates: start: 20120126, end: 20120209
  3. DEXAMETHASONE [Concomitant]
  4. DEXCHLORPHENIRAM MALEATE [Concomitant]
  5. ONDANSETRON HCL [Concomitant]
  6. LETROZOLE [Concomitant]
  7. RANITIDINE HYDROCHLORIDE [Suspect]
     Indication: PRODUCT USED FOR UNKNOWN INDICATION

REACTIONS (7)
  - ANAPHYLACTIC SHOCK [None]
  - BRONCHOSPASM [None]
  - ELECTROCARDIOGRAM ST SEGMENT ELEVATION [None]
  - ATRIAL FIBRILLATION [None]
  - HYPERTENSION [None]
  - TACHYARRHYTHMIA [None]
  - ELECTROCARDIOGRAM QRS COMPLEX ABNORMAL [None]
